FAERS Safety Report 6922640-8 (Version None)
Quarter: 2010Q3

REPORT INFORMATION
  Report Type: 
  Country: None (occurrence: None)
  Receive Date: 20100813
  Receipt Date: 20100802
  Transmission Date: 20110219
  Serious: Yes (Disabling)
  Sender: FDA-Public Use
  Company Number: PHHY2010IT50708

PATIENT
  Sex: Female

DRUGS (2)
  1. ZOMETA [Suspect]
     Indication: BREAST CANCER
     Dosage: UNK
     Route: 042
     Dates: start: 20050101, end: 20091231
  2. TAREG [Concomitant]

REACTIONS (2)
  - BONE DISORDER [None]
  - OSTEONECROSIS OF JAW [None]
